FAERS Safety Report 7072052-4 (Version None)
Quarter: 2010Q4

REPORT INFORMATION
  Report Type: 
  Country: None (occurrence: None)
  Receive Date: 20101029
  Receipt Date: 20091125
  Transmission Date: 20110411
  Serious: No
  Sender: FDA-Public Use
  Company Number: A0832008A

PATIENT
  Age: 72 Year
  Sex: Male

DRUGS (5)
  1. ADVAIR DISKUS 100/50 [Suspect]
     Indication: CHRONIC OBSTRUCTIVE PULMONARY DISEASE
     Route: 055
     Dates: start: 20091124
  2. LASIX [Concomitant]
  3. LOPRESSOR [Concomitant]
  4. SEREVENT [Concomitant]
  5. PREDNISONE [Concomitant]

REACTIONS (2)
  - ERYTHEMA [None]
  - FLUID RETENTION [None]
